FAERS Safety Report 9601165 (Version 2)
Quarter: 2013Q4

REPORT INFORMATION
  Report Type: Spontaneous
  Country: US (occurrence: US)
  Receive Date: 20131004
  Receipt Date: 20131004
  Transmission Date: 20140711
  Serious: No
  Sender: FDA-Public Use
  Company Number: US-AMGEN-USASP2013036740

PATIENT
  Age: 53 Year
  Sex: Female
  Weight: 75.74 kg

DRUGS (6)
  1. ENBREL [Suspect]
     Indication: PRODUCT USED FOR UNKNOWN INDICATION
     Dosage: 50 MG, QWK
     Route: 058
     Dates: start: 20120115, end: 201212
  2. VITAMIN D                          /00107901/ [Concomitant]
     Dosage: 400 UNIT, UNK
  3. FISH OIL [Concomitant]
     Dosage: UNK
  4. ESTRADIOL [Concomitant]
     Dosage: 0.05 MG, UNK
  5. WELLBUTRIN [Concomitant]
     Dosage: 75 MG, UNK
  6. ALPRAZOLAM [Concomitant]
     Dosage: 0.25 MG, UNK

REACTIONS (1)
  - Drug ineffective [Unknown]
